FAERS Safety Report 25432339 (Version 4)
Quarter: 2025Q3

REPORT INFORMATION
  Report Type: Report from Study
  Country: US (occurrence: US)
  Receive Date: 20250613
  Receipt Date: 20250819
  Transmission Date: 20251020
  Serious: No
  Sender: ACADIA PHARMACEUTICALS
  Company Number: US-ACADIA PHARMACEUTICALS INC.-ACA-2025-TRF-006939

PATIENT
  Sex: Female

DRUGS (2)
  1. DAYBUE [Suspect]
     Active Substance: TROFINETIDE
     Indication: Rett syndrome
     Dosage: 30 MILLILITER, BID
     Route: 048
     Dates: end: 20250714
  2. DAYBUE [Suspect]
     Active Substance: TROFINETIDE
     Dosage: 15 MILLILITER, BID
     Route: 048

REACTIONS (13)
  - Adverse drug reaction [Unknown]
  - Hyperventilation [Recovering/Resolving]
  - Bruxism [Not Recovered/Not Resolved]
  - Dyskinesia [Not Recovered/Not Resolved]
  - Breath holding [Not Recovered/Not Resolved]
  - Screaming [Not Recovered/Not Resolved]
  - Sleep terror [Recovering/Resolving]
  - Fear [Not Recovered/Not Resolved]
  - Muscle spasms [Not Recovered/Not Resolved]
  - Grimacing [Not Recovered/Not Resolved]
  - Hypervigilance [Not Recovered/Not Resolved]
  - Pain [Not Recovered/Not Resolved]
  - Prescribed underdose [Not Recovered/Not Resolved]
